FAERS Safety Report 8484543-X (Version None)
Quarter: 2012Q2

REPORT INFORMATION
  Report Type: 
  Country: None (occurrence: None)
  Receive Date: 20120625
  Receipt Date: 20120615
  Transmission Date: 20120825
  Serious: Yes (Other)
  Sender: FDA-Public Use
  Company Number: E2B_00000247

PATIENT
  Age: 46 Year
  Sex: Male

DRUGS (2)
  1. DILANTIN [Suspect]
     Indication: CONVULSION
     Dosage: 400 MG (DAILY),PER ORAL ; 500 MG (DAILY),PER ORAL
     Route: 048
  2. SUPRAX [Suspect]
     Indication: BRONCHITIS
     Dosage: 400 MG (400 MG,1 IN 1 D),PER ORAL
     Route: 048
     Dates: start: 20120601, end: 20120601

REACTIONS (3)
  - CONDITION AGGRAVATED [None]
  - CONVULSION [None]
  - DRUG INTERACTION [None]
